FAERS Safety Report 22061299 (Version 1)
Quarter: 2023Q1

REPORT INFORMATION
  Report Type: Other
  Country: CA (occurrence: None)
  Receive Date: 20230304
  Receipt Date: 20230304
  Transmission Date: 20230417
  Serious: Yes (Other)
  Sender: FDA-Public Use
  Company Number: CA-ROCHE-3297854

PATIENT
  Sex: Female

DRUGS (2)
  1. ACTEMRA [Suspect]
     Active Substance: TOCILIZUMAB
     Indication: Rheumatoid arthritis
     Dosage: DRUG DOSE FIRST ADMINISTERED IS 162 MG MILLIGRAM(S)
     Route: 058
     Dates: start: 20220702, end: 2022
  2. ACTEMRA [Suspect]
     Active Substance: TOCILIZUMAB
     Indication: Juvenile idiopathic arthritis
     Dosage: DRUG DOSE FIRST ADMINISTERED IS 162 MG MILLIGRAM(S)
     Route: 058
     Dates: start: 2023

REACTIONS (1)
  - Uveitis [Unknown]
